FAERS Safety Report 6745637-X (Version None)
Quarter: 2010Q2

REPORT INFORMATION
  Report Type: 
  Country: None (occurrence: None)
  Receive Date: 20100528
  Receipt Date: 20100518
  Transmission Date: 20101027
  Serious: Yes (Hospitalization)
  Sender: FDA-Public Use
  Company Number: IN-SOLVAY-00310001145

PATIENT
  Age: 21501 Day
  Sex: Male

DRUGS (6)
  1. CREON [Suspect]
     Indication: PANCREATIC INSUFFICIENCY
     Dosage: DAILY DOSE: 2,40,000; AS USED: 40,000; FREQUENCY: FOUR TIMES A DAY
     Route: 048
     Dates: start: 20090425, end: 20100212
  2. CREON [Suspect]
     Dosage: DAILY DOSE:  80,000, AS USED: 40,000, FREQUENCY: TWICE A DAY
     Route: 048
     Dates: start: 20100213
  3. GLYNASE MF [Concomitant]
     Indication: DIABETES MELLITUS
     Dosage: DAILY DOSE:  UNKNOWN,  FREQUENCY: TWICE A DAY
     Route: 048
     Dates: start: 20100224, end: 20100303
  4. GLYNASE MF [Concomitant]
     Dosage: DAILY DOSE:  UNKNOWN, FREQUENCY: ONCE A DAY
     Route: 048
     Dates: start: 20100223, end: 20100223
  5. GLYNASE MF [Concomitant]
     Dosage: DAILY DOSE:  UNKNOWN, FREQUENCY: ONCE A DAY
     Route: 048
     Dates: start: 20100304
  6. MIXTARD HUMAN 70/30 [Concomitant]
     Indication: DIABETES MELLITUS
     Dosage: DAILY DOSE:  8U/6/U, AS USED: 8U/6/U, FREQUENCY: ONCE A DAY.
     Route: 042
     Dates: start: 20100214

REACTIONS (4)
  - CEREBRAL INFARCTION [None]
  - HAEMATURIA [None]
  - INSOMNIA [None]
  - RALES [None]
